FAERS Safety Report 5535525-9 (Version None)
Quarter: 2007Q4

REPORT INFORMATION
  Report Type: 
  Country: None (occurrence: None)
  Receive Date: 20071206
  Receipt Date: 20071204
  Transmission Date: 20080405
  Serious: Yes (Disabling)
  Sender: FDA-Public Use
  Company Number: GB-SP-2007-04157

PATIENT
  Age: 76 Year
  Sex: Male

DRUGS (5)
  1. IMMUCYST [Suspect]
     Indication: BLADDER CANCER
     Route: 043
     Dates: start: 20070903, end: 20071127
  2. ALPHABLOCKER [Concomitant]
  3. ROSUVASTATIN [Concomitant]
  4. BENDROFLUAZIDE [Concomitant]
  5. ASPIRIN [Concomitant]

REACTIONS (2)
  - ARTHRALGIA [None]
  - OEDEMA PERIPHERAL [None]
